FAERS Safety Report 16410776 (Version 2)
Quarter: 2019Q2

REPORT INFORMATION
  Report Type: Spontaneous
  Country: IT (occurrence: IT)
  Receive Date: 20190610
  Receipt Date: 20190612
  Transmission Date: 20190711
  Serious: Yes (Other)
  Sender: FDA-Public Use
  Company Number: PHHY2019IT019669

PATIENT
  Age: 33 Year
  Sex: Female

DRUGS (12)
  1. MINOCYCLINE HYDROCHLORIDE. [Suspect]
     Active Substance: MINOCYCLINE HYDROCHLORIDE
     Indication: ACNE
     Dosage: 100 MG, QD
     Route: 065
  2. MYCOPHENOLATE MOFETIL. [Suspect]
     Active Substance: MYCOPHENOLATE MOFETIL
     Indication: SYSTEMIC LUPUS ERYTHEMATOSUS
  3. AZATHIOPRINE. [Concomitant]
     Active Substance: AZATHIOPRINE
     Indication: RETINAL VASCULITIS
     Dosage: UNK
     Route: 065
     Dates: start: 1998
  4. METHOTREXATE. [Concomitant]
     Active Substance: METHOTREXATE
     Indication: SYSTEMIC LUPUS ERYTHEMATOSUS
  5. HYDROXYCHLOROQUINE [Concomitant]
     Active Substance: HYDROXYCHLOROQUINE
     Indication: SYSTEMIC LUPUS ERYTHEMATOSUS
     Dosage: UNK
     Route: 065
     Dates: start: 1998
  6. HYDROXYCHLOROQUINE [Concomitant]
     Active Substance: HYDROXYCHLOROQUINE
     Indication: RETINAL VASCULITIS
  7. MUPIROCIN. [Suspect]
     Active Substance: MUPIROCIN
     Indication: ACNE
     Route: 005
  8. CYCLOSPORIN A [Concomitant]
     Active Substance: CYCLOSPORINE
     Indication: RETINAL VASCULITIS
  9. METHOTREXATE. [Concomitant]
     Active Substance: METHOTREXATE
     Indication: RETINAL VASCULITIS
     Dosage: UNK
     Route: 065
     Dates: start: 1998
  10. MYCOPHENOLATE MOFETIL. [Suspect]
     Active Substance: MYCOPHENOLATE MOFETIL
     Indication: RETINAL VASCULITIS
     Dosage: 2 G, QD
     Route: 065
     Dates: start: 200511, end: 20070301
  11. AZATHIOPRINE. [Concomitant]
     Active Substance: AZATHIOPRINE
     Indication: SYSTEMIC LUPUS ERYTHEMATOSUS
  12. CYCLOSPORIN A [Concomitant]
     Active Substance: CYCLOSPORINE
     Indication: SYSTEMIC LUPUS ERYTHEMATOSUS
     Dosage: UNK
     Route: 065
     Dates: start: 1998

REACTIONS (7)
  - Acne [Recovered/Resolved]
  - Discomfort [Recovered/Resolved]
  - Pyrexia [Recovered/Resolved]
  - Staphylococcal skin infection [Recovered/Resolved]
  - Off label use [Recovered/Resolved]
  - Acne cystic [Recovered/Resolved]
  - Dizziness [Unknown]

NARRATIVE: CASE EVENT DATE: 200703
